FAERS Safety Report 21719611 (Version 1)
Quarter: 2022Q4

REPORT INFORMATION
  Report Type: Spontaneous
  Country: US (occurrence: US)
  Receive Date: 20221213
  Receipt Date: 20221213
  Transmission Date: 20230112
  Serious: No
  Sender: FDA-Public Use
  Company Number: US-BIOVITRUM-2022US14411

PATIENT
  Sex: Male
  Weight: 9 kg

DRUGS (10)
  1. SYNAGIS [Suspect]
     Active Substance: PALIVIZUMAB
     Indication: Pectus excavatum
  2. SYNAGIS [Suspect]
     Active Substance: PALIVIZUMAB
     Indication: Hypoxia
  3. EPINEPHRINE [Concomitant]
     Active Substance: EPINEPHRINE
  4. SYNAGIS [Suspect]
     Active Substance: PALIVIZUMAB
     Indication: Hypoventilation
  5. CHILDRENS TYLENOL [Concomitant]
     Active Substance: ACETAMINOPHEN
  6. SYNAGIS [Suspect]
     Active Substance: PALIVIZUMAB
     Indication: Snoring
  7. SYNAGIS [Suspect]
     Active Substance: PALIVIZUMAB
     Indication: Low birth weight baby
  8. INFANTS MOTRIN [Concomitant]
     Active Substance: IBUPROFEN
  9. SYNAGIS [Suspect]
     Active Substance: PALIVIZUMAB
     Indication: Peripheral vascular disorder
  10. FLUTICASONE PROPIONATE HFA [Concomitant]
     Active Substance: FLUTICASONE PROPIONATE

REACTIONS (3)
  - Illness [Unknown]
  - Pyrexia [Unknown]
  - Product dose omission issue [Unknown]
